FAERS Safety Report 6657763-4 (Version None)
Quarter: 2010Q1

REPORT INFORMATION
  Report Type: 
  Country: None (occurrence: None)
  Receive Date: 20100330
  Receipt Date: 20100305
  Transmission Date: 20100710
  Serious: Yes (Life-Threatening, Hospitalization)
  Sender: FDA-Public Use
  Company Number: US-TYCO HEALTHCARE/MALLINCKRODT-T201000763

PATIENT
  Sex: Female

DRUGS (1)
  1. METHADOSE [Suspect]
     Dosage: UNK
     Route: 048

REACTIONS (1)
  - RESPIRATORY ARREST [None]
